FAERS Safety Report 5937822-1 (Version None)
Quarter: 2008Q4

REPORT INFORMATION
  Report Type: 
  Country: None (occurrence: None)
  Receive Date: 20081031
  Receipt Date: 20081028
  Transmission Date: 20090506
  Serious: Yes (Life-Threatening, Hospitalization)
  Sender: FDA-Public Use
  Company Number: IL-SANOFI-SYNTHELABO-D01200807852

PATIENT

DRUGS (10)
  1. CLOPIDOGREL [Suspect]
     Indication: ACUTE CORONARY SYNDROME
     Dosage: 300 MG (+PLACEBO) D1 FOLLOWED BY 75 MG (+PLACEBO) D2 TO D7; 75 MG FROM D8 TO 30
     Route: 048
  2. ACTRAPID [Concomitant]
  3. FENTANYL [Concomitant]
  4. CEFAMEZIN [Concomitant]
  5. MIDAZOLAM HCL [Concomitant]
  6. FUSID [Concomitant]
     Dosage: 20 MG
     Route: 042
  7. DOPAMINE HCL [Concomitant]
  8. ASA HIGH DOSE [Concomitant]
     Indication: ACUTE CORONARY SYNDROME
     Dosage: AT LEAST 300 MG D1; 300-325 MG FROM D2 TO D30
     Route: 048
     Dates: start: 20081008
  9. CLOPIDOGREL [Suspect]
     Indication: ACUTE CORONARY SYNDROME
     Dosage: 600 MG LD D1 FOLLOWED BY 150 MG FROM D2 TO D7; 75 MG FROM D8 TO 30
     Route: 048
     Dates: start: 20081008
  10. ADRENALINE [Concomitant]

REACTIONS (1)
  - CARDIAC ARREST [None]
